FAERS Safety Report 13156366 (Version 1)
Quarter: 2017Q1

REPORT INFORMATION
  Report Type: Not Available
  Country: US (occurrence: US)
  Receive Date: 20170126
  Receipt Date: 20170126
  Transmission Date: 20170428
  Serious: No
  Sender: FDA-Public Use
  Company Number: US-ANIPHARMA-2016-US-010154

PATIENT
  Age: 32 Year
  Sex: Female

DRUGS (3)
  1. SULFAMETHOXAZOLE + TRIMETHOPRIM (NON-SPECIFIC) [Suspect]
     Active Substance: SULFAMETHOXAZOLE\TRIMETHOPRIM
     Dosage: UNKNOWN
     Route: 065
  2. PROMETHAZINE HCL (NON-SPECIFIC) [Suspect]
     Active Substance: PROMETHAZINE HYDROCHLORIDE
     Dosage: UNKNOWN
     Route: 065
  3. REGLAN [Suspect]
     Active Substance: METOCLOPRAMIDE HYDROCHLORIDE
     Dosage: UNKNOWN
     Route: 065

REACTIONS (2)
  - Palpitations [Unknown]
  - Rash [Unknown]
